FAERS Safety Report 4734694-8 (Version None)
Quarter: 2005Q3

REPORT INFORMATION
  Report Type: 
  Country: None (occurrence: None)
  Receive Date: 20050804
  Receipt Date: 20050408
  Transmission Date: 20060218
  Serious: Yes (Hospitalization, Disabling, Other)
  Sender: FDA-Public Use
  Company Number: US-MERCK-0504USA01284

PATIENT
  Sex: Male
  Weight: 75 kg

DRUGS (18)
  1. VIOXX [Suspect]
     Indication: PAIN INFLAMMATION ACTIVATED
     Route: 048
     Dates: start: 20020101, end: 20040301
  2. VIOXX [Suspect]
     Indication: OSTEOARTHRITIS
     Route: 048
     Dates: start: 20020101, end: 20040301
  3. DIOVAN [Concomitant]
     Route: 065
  4. ATENOLOL [Concomitant]
     Route: 065
  5. LIPITOR [Concomitant]
     Route: 065
  6. PLAVIX [Concomitant]
     Route: 065
  7. WARFARIN [Concomitant]
     Route: 065
  8. ASPIRIN [Concomitant]
     Route: 065
  9. GLUCOTROL [Concomitant]
     Route: 065
  10. VITAMINS (UNSPECIFIED) [Concomitant]
     Route: 065
  11. PROTONIX [Concomitant]
     Route: 065
  12. ALTACE [Concomitant]
     Route: 065
     Dates: end: 20030101
  13. GLUCOSAMINE [Concomitant]
     Route: 065
  14. LOVENOX [Concomitant]
     Route: 065
  15. ALPRAZOLAM [Concomitant]
     Route: 065
  16. ULTRACET [Concomitant]
     Route: 065
     Dates: start: 20030101
  17. DARVOCET-N 100 [Concomitant]
     Route: 065
     Dates: start: 20030501
  18. [THERAPY UNSPECIFIED] [Concomitant]
     Route: 065

REACTIONS (13)
  - ATHEROSCLEROSIS [None]
  - BLOOD CHOLESTEROL INCREASED [None]
  - CARDIOVASCULAR DISORDER [None]
  - CEREBROVASCULAR ACCIDENT [None]
  - CONSTIPATION [None]
  - DEAFNESS [None]
  - DYSPEPSIA [None]
  - GASTROOESOPHAGEAL REFLUX DISEASE [None]
  - HAEMATOCHEZIA [None]
  - HYPERTENSION [None]
  - KNEE ARTHROPLASTY [None]
  - PAIN [None]
  - THROMBOSIS [None]
